FAERS Safety Report 7682057-8 (Version None)
Quarter: 2011Q3

REPORT INFORMATION
  Report Type: 
  Country: None (occurrence: None)
  Receive Date: 20110815
  Receipt Date: 20110802
  Transmission Date: 20111222
  Serious: Yes (Hospitalization)
  Sender: FDA-Public Use
  Company Number: CA-JNJFOC-20110802680

PATIENT
  Sex: Female
  Weight: 96 kg

DRUGS (9)
  1. METHOTREXATE [Concomitant]
     Route: 048
  2. CALCIUM CARBONATE [Concomitant]
  3. PREVACID [Concomitant]
  4. REMICADE [Suspect]
     Route: 042
     Dates: start: 20110801
  5. MAGNESIUM [Concomitant]
  6. ASPIRIN [Concomitant]
  7. REMICADE [Suspect]
     Indication: RHEUMATOID ARTHRITIS
     Route: 042
     Dates: start: 20100301
  8. VITAMIN D [Concomitant]
  9. OXYBUTYNIN [Concomitant]

REACTIONS (4)
  - OESOPHAGEAL SPASM [None]
  - NAUSEA [None]
  - MYOCARDITIS [None]
  - VOMITING [None]
